FAERS Safety Report 5121227-X (Version None)
Quarter: 2006Q4

REPORT INFORMATION
  Report Type: 
  Country: None (occurrence: None)
  Receive Date: 20061002
  Receipt Date: 20060918
  Transmission Date: 20070319
  Serious: Yes (Other)
  Sender: FDA-Public Use
  Company Number: US200609004387

PATIENT
  Age: 59 Year
  Sex: Female

DRUGS (5)
  1. FORTEO [Suspect]
     Indication: OSTEOPOROSIS
     Dates: start: 20060501, end: 20060916
  2. EVISTA [Suspect]
     Indication: OSTEOPOROSIS
     Dates: start: 20050901, end: 20060601
  3. FORTEO [Concomitant]
  4. LEVOXINE (LEVOTHYROXINE SODIUM) [Concomitant]
  5. BISMUTH [Concomitant]

REACTIONS (16)
  - AGITATION [None]
  - DRUG TOXICITY [None]
  - DYSKINESIA [None]
  - FEAR [None]
  - FEELING ABNORMAL [None]
  - FEELING HOT [None]
  - FEELING JITTERY [None]
  - HEADACHE [None]
  - INSOMNIA [None]
  - MEMORY IMPAIRMENT [None]
  - MENTAL DISORDER [None]
  - MUSCLE SPASTICITY [None]
  - SENSATION OF HEAVINESS [None]
  - SUICIDAL IDEATION [None]
  - TENDONITIS [None]
  - THOUGHT BLOCKING [None]
